FAERS Safety Report 11256836 (Version 1)
Quarter: 2015Q3

REPORT INFORMATION
  Report Type: Spontaneous
  Country: US (occurrence: US)
  Receive Date: 20150709
  Receipt Date: 20150709
  Transmission Date: 20151125
  Serious: No
  Sender: FDA-Public Use
  Company Number: US-PURDUE-USA-2014-0119324

PATIENT
  Age: 49 Year
  Sex: Male
  Weight: 124.72 kg

DRUGS (2)
  1. BUTRANS [Suspect]
     Active Substance: BUPRENORPHINE
     Indication: PAIN
     Dosage: 15 MCG/HR, WEEKLY
     Route: 062
     Dates: start: 201411
  2. BUTRANS [Suspect]
     Active Substance: BUPRENORPHINE
     Dosage: 10 MCG/HR, WEEKLY
     Route: 062
     Dates: start: 201410

REACTIONS (8)
  - Application site pruritus [Unknown]
  - Application site discharge [Unknown]
  - Product physical issue [Unknown]
  - Application site pain [Unknown]
  - Application site irritation [Recovering/Resolving]
  - Application site exfoliation [Unknown]
  - Application site haemorrhage [Recovering/Resolving]
  - Product adhesion issue [Unknown]

NARRATIVE: CASE EVENT DATE: 201410
